FAERS Safety Report 9734522 (Version 2)
Quarter: 2013Q4

REPORT INFORMATION
  Report Type: Spontaneous
  Country: CA (occurrence: CA)
  Receive Date: 20131206
  Receipt Date: 20131224
  Transmission Date: 20140711
  Serious: Yes (Hospitalization, Other)
  Sender: FDA-Public Use
  Company Number: CA-BIOGENIDEC-2013BI115247

PATIENT
  Age: 55 Year
  Sex: Female

DRUGS (5)
  1. TECFIDERA [Suspect]
     Indication: RELAPSING-REMITTING MULTIPLE SCLEROSIS
     Route: 048
     Dates: start: 20131114, end: 20131122
  2. TECFIDERA [Suspect]
     Indication: RELAPSING-REMITTING MULTIPLE SCLEROSIS
     Route: 048
     Dates: start: 20131123
  3. OLMATEC PLUS [Concomitant]
  4. OLMATEC [Concomitant]
  5. CYPRALEC [Concomitant]

REACTIONS (10)
  - Blood potassium decreased [Not Recovered/Not Resolved]
  - Blood sodium decreased [Not Recovered/Not Resolved]
  - Hypoglycaemia [Not Recovered/Not Resolved]
  - Epilepsy [Unknown]
  - Lung neoplasm malignant [Unknown]
  - Underdose [Recovered/Resolved]
  - Amnesia [Unknown]
  - Confusional state [Unknown]
  - Speech disorder [Unknown]
  - Multiple sclerosis [Unknown]
